FAERS Safety Report 14937111 (Version 1)
Quarter: 2018Q2

REPORT INFORMATION
  Report Type: Spontaneous
  Country: US (occurrence: US)
  Receive Date: 20180525
  Receipt Date: 20180525
  Transmission Date: 20180711
  Serious: No
  Sender: FDA-Public Use
  Company Number: US-BRISTOL-MYERS SQUIBB COMPANY-BMS-2018-047901

PATIENT
  Sex: Female

DRUGS (1)
  1. ELIQUIS [Suspect]
     Active Substance: APIXABAN
     Indication: PULMONARY EMBOLISM
     Dosage: UNAVAILABLE
     Route: 065
     Dates: start: 201801

REACTIONS (4)
  - Muscle spasms [Unknown]
  - Burning sensation [Unknown]
  - Rash [Unknown]
  - Arthralgia [Unknown]
